FAERS Safety Report 6370042-8 (Version None)
Quarter: 2009Q3

REPORT INFORMATION
  Report Type: 
  Country: None (occurrence: None)
  Receive Date: 20090923
  Receipt Date: 20090715
  Transmission Date: 20100115
  Serious: Yes (Other)
  Sender: FDA-Public Use
  Company Number: US-ASTRAZENECA-2006UW08266

PATIENT
  Age: 57 Year
  Sex: Female
  Weight: 97.5 kg

DRUGS (14)
  1. SEROQUEL [Suspect]
     Indication: DEPRESSION
     Route: 048
     Dates: start: 19980101, end: 20000101
  2. SEROQUEL [Suspect]
     Indication: FEELING OF RELAXATION
     Route: 048
     Dates: start: 19980101, end: 20000101
  3. SEROQUEL [Suspect]
     Route: 048
     Dates: start: 19980312
  4. SEROQUEL [Suspect]
     Route: 048
     Dates: start: 19980312
  5. SEROQUEL [Suspect]
     Route: 048
     Dates: start: 19980813
  6. SEROQUEL [Suspect]
     Route: 048
     Dates: start: 19980813
  7. SEROQUEL [Suspect]
     Route: 048
     Dates: start: 19981022
  8. SEROQUEL [Suspect]
     Route: 048
     Dates: start: 19981022
  9. SEROQUEL [Suspect]
     Route: 048
     Dates: start: 19990610
  10. SEROQUEL [Suspect]
     Route: 048
     Dates: start: 19990610
  11. PAXIL [Concomitant]
  12. DEPAKOTE [Concomitant]
  13. SYNTHROID [Concomitant]
     Dosage: 0.175MG 1 AM
     Route: 048
     Dates: start: 19990726
  14. PREMARIN [Concomitant]
     Indication: HYSTERECTOMY
     Dosage: 0.625 MG 1 AM
     Dates: start: 19990726

REACTIONS (4)
  - DIABETES MELLITUS [None]
  - KETOACIDOSIS [None]
  - PANCREATITIS [None]
  - TYPE 2 DIABETES MELLITUS [None]
